FAERS Safety Report 6443290-6 (Version None)
Quarter: 2009Q4

REPORT INFORMATION
  Report Type: 
  Country: None (occurrence: None)
  Receive Date: 20091117
  Receipt Date: 20091110
  Transmission Date: 20100525
  Serious: Yes (Other)
  Sender: FDA-Public Use
  Company Number: US-TYCO HEALTHCARE/MALLINCKRODT-T200902069

PATIENT
  Sex: Female

DRUGS (1)
  1. OPTIRAY 350 [Suspect]
     Dosage: 125 ML (CC), SINGLE
     Route: 042
     Dates: start: 20091105, end: 20091105

REACTIONS (4)
  - LARYNGEAL OEDEMA [None]
  - NASAL CONGESTION [None]
  - PERIORBITAL OEDEMA [None]
  - SKIN TIGHTNESS [None]
